FAERS Safety Report 8289517-X (Version None)
Quarter: 2012Q2

REPORT INFORMATION
  Report Type: 
  Country: None (occurrence: None)
  Receive Date: 20120417
  Receipt Date: 20120411
  Transmission Date: 20120825
  Serious: Yes (Hospitalization, Other)
  Sender: FDA-Public Use
  Company Number: US-PFIZER INC-2012091411

PATIENT
  Age: 57 Year
  Sex: Male
  Weight: 74.09 kg

DRUGS (4)
  1. REVATIO [Suspect]
     Indication: PULMONARY ARTERIAL HYPERTENSION
     Dosage: UNK
  2. TRACLEER [Suspect]
     Dosage: UNK
  3. COUMADIN [Concomitant]
     Dosage: UNK
  4. TYVASO [Suspect]
     Indication: PULMONARY ARTERIAL HYPERTENSION
     Dosage: 18-72 MICROGRAMS (3-12 BREATHS) 4 TIMES DAY
     Dates: start: 20090910

REACTIONS (7)
  - CARDIAC DISORDER [None]
  - CHEST DISCOMFORT [None]
  - FALL [None]
  - BLOOD PRESSURE ABNORMAL [None]
  - SYNCOPE [None]
  - BLOOD PRESSURE DECREASED [None]
  - DIZZINESS [None]
